FAERS Safety Report 7453220-6 (Version None)
Quarter: 2011Q2

REPORT INFORMATION
  Report Type: 
  Country: None (occurrence: None)
  Receive Date: 20110502
  Receipt Date: 20101130
  Transmission Date: 20111010
  Serious: No
  Sender: FDA-Public Use
  Company Number: US-ASTRAZENECA-2010SE56683

PATIENT
  Age: 68 Year
  Sex: Male
  Weight: 78.5 kg

DRUGS (5)
  1. LAXATIVES OTC [Concomitant]
  2. REMERON [Concomitant]
  3. NEXIUM [Suspect]
     Indication: GASTROOESOPHAGEAL REFLUX DISEASE
     Route: 048
     Dates: start: 20100101
  4. KLONOPIN [Interacting]
     Indication: ANXIETY DISORDER
  5. AZOR [Concomitant]
     Indication: HYPERTENSION
     Dosage: 5/25

REACTIONS (4)
  - DRUG INTERACTION [None]
  - WEIGHT DECREASED [None]
  - TREMOR [None]
  - CHILLS [None]
